FAERS Safety Report 20520663 (Version 1)
Quarter: 2022Q1

REPORT INFORMATION
  Report Type: Spontaneous
  Country: US (occurrence: US)
  Receive Date: 20220225
  Receipt Date: 20220225
  Transmission Date: 20220423
  Serious: No
  Sender: FDA-Public Use
  Company Number: US-FERRINGPH-2021FE02519

PATIENT
  Sex: Male

DRUGS (2)
  1. NOCDURNA [Suspect]
     Active Substance: DESMOPRESSIN ACETATE
     Indication: Product used for unknown indication
     Dosage: UNK
     Route: 065
     Dates: start: 20210415
  2. QVAR [Concomitant]
     Active Substance: BECLOMETHASONE DIPROPIONATE
     Indication: Product used for unknown indication
     Dosage: UNK

REACTIONS (2)
  - Labelled drug-drug interaction medication error [Unknown]
  - Contraindicated product prescribed [Unknown]

NARRATIVE: CASE EVENT DATE: 20210101
